FAERS Safety Report 7084766-0 (Version None)
Quarter: 2010Q4

REPORT INFORMATION
  Report Type: 
  Country: None (occurrence: None)
  Receive Date: 20101105
  Receipt Date: 20101026
  Transmission Date: 20110411
  Serious: Yes (Hospitalization)
  Sender: FDA-Public Use
  Company Number: US-BIOGENIDEC-2009BI028173

PATIENT
  Age: 57 Year
  Sex: Female

DRUGS (4)
  1. TYSABRI [Suspect]
     Indication: MULTIPLE SCLEROSIS
     Route: 042
     Dates: start: 20061215, end: 20070518
  2. TYSABRI [Suspect]
     Route: 042
     Dates: start: 20080319, end: 20090416
  3. TYSABRI [Suspect]
     Route: 042
     Dates: start: 20091112
  4. AMPYRA [Concomitant]
     Indication: MULTIPLE SCLEROSIS

REACTIONS (18)
  - BACK PAIN [None]
  - DEPRESSION [None]
  - DIPLOPIA [None]
  - DRUG WITHDRAWAL SYNDROME [None]
  - ESCHERICHIA INFECTION [None]
  - EXOSTOSIS [None]
  - FATIGUE [None]
  - INSOMNIA [None]
  - JOINT DISLOCATION [None]
  - LIGAMENT RUPTURE [None]
  - LOSS OF CONTROL OF LEGS [None]
  - MULTIPLE SCLEROSIS RELAPSE [None]
  - PROCEDURAL COMPLICATION [None]
  - SPINAL COLUMN STENOSIS [None]
  - SPINAL DISORDER [None]
  - TREMOR [None]
  - URINARY INCONTINENCE [None]
  - VERTIGO [None]
